FAERS Safety Report 5595751-X (Version None)
Quarter: 2008Q1

REPORT INFORMATION
  Report Type: 
  Country: None (occurrence: None)
  Receive Date: 20080118
  Receipt Date: 20080111
  Transmission Date: 20080703
  Serious: Yes (Hospitalization)
  Sender: FDA-Public Use
  Company Number: A0703659A

PATIENT
  Age: 23 Year
  Sex: Male

DRUGS (2)
  1. COMBIVIR [Suspect]
     Indication: HIV INFECTION
     Route: 065
  2. SUSTIVA [Suspect]
     Indication: HIV INFECTION
     Route: 065

REACTIONS (13)
  - BRONCHOSTENOSIS [None]
  - DYSPHONIA [None]
  - DYSPNOEA [None]
  - KAPOSI'S SARCOMA [None]
  - LEUKOPENIA [None]
  - MYCOBACTERIUM AVIUM COMPLEX INFECTION [None]
  - ORAL CANDIDIASIS [None]
  - PHARYNGEAL ERYTHEMA [None]
  - RASH PAPULAR [None]
  - SKIN NODULE [None]
  - STRIDOR [None]
  - TRACHEAL NEOPLASM [None]
  - WHEEZING [None]
